FAERS Safety Report 15991399 (Version 2)
Quarter: 2019Q2

REPORT INFORMATION
  Report Type: Spontaneous
  Country: CA (occurrence: CA)
  Receive Date: 20190221
  Receipt Date: 20190404
  Transmission Date: 20190711
  Serious: Yes (Other)
  Sender: FDA-Public Use
  Company Number: CA-PFIZER INC-2019075219

PATIENT
  Age: 55 Year
  Sex: Male

DRUGS (5)
  1. PANTOPRAZOLE [Concomitant]
     Active Substance: PANTOPRAZOLE
     Dosage: 40 MG, DAILY
  2. CORTEF [Suspect]
     Active Substance: HYDROCORTISONE
     Dosage: 15 MG, DAILY
  3. ANDROGEL [Suspect]
     Active Substance: TESTOSTERONE
     Dosage: UNK UNK, DAILY
  4. SYNTHROID [Concomitant]
     Active Substance: LEVOTHYROXINE SODIUM
     Dosage: 150 UG, DAILY
  5. SANDOSTATIN [Concomitant]
     Active Substance: OCTREOTIDE ACETATE
     Dosage: 30 MG, MONTHLY

REACTIONS (1)
  - Neoplasm [Unknown]
